FAERS Safety Report 8262812-6 (Version None)
Quarter: 2012Q2

REPORT INFORMATION
  Report Type: 
  Country: None (occurrence: None)
  Receive Date: 20120405
  Receipt Date: 20120326
  Transmission Date: 20120825
  Serious: Yes (Hospitalization, Other)
  Sender: FDA-Public Use
  Company Number: AR-JNJFOC-20120312348

PATIENT
  Age: 13 Year
  Sex: Female

DRUGS (1)
  1. TOPIRAMATE [Suspect]
     Indication: MIGRAINE PROPHYLAXIS
     Route: 048

REACTIONS (5)
  - MYOPIA [None]
  - INTRAOCULAR PRESSURE INCREASED [None]
  - CHOROIDAL EFFUSION [None]
  - VISION BLURRED [None]
  - HEADACHE [None]
